FAERS Safety Report 25495136 (Version 1)
Quarter: 2025Q2

REPORT INFORMATION
  Report Type: Report from Study
  Country: CN (occurrence: CN)
  Receive Date: 20250630
  Receipt Date: 20250630
  Transmission Date: 20250716
  Serious: Yes (Other)
  Sender: ROCHE
  Company Number: CN-ROCHE-10000323348

PATIENT

DRUGS (8)
  1. ATEZOLIZUMAB [Suspect]
     Active Substance: ATEZOLIZUMAB
     Indication: Small cell lung cancer extensive stage
     Route: 065
  2. DURVALUMAB [Suspect]
     Active Substance: DURVALUMAB
     Indication: Small cell lung cancer extensive stage
     Route: 065
  3. ETOPOSIDE [Concomitant]
     Active Substance: ETOPOSIDE
  4. CISPLATIN [Concomitant]
     Active Substance: CISPLATIN
  5. CARBOPLATIN [Concomitant]
     Active Substance: CARBOPLATIN
  6. SINTILIMAB [Concomitant]
     Active Substance: SINTILIMAB
  7. TISLELIZUMAB [Concomitant]
     Active Substance: TISLELIZUMAB
  8. CATEQUENTINIB [Concomitant]
     Active Substance: CATEQUENTINIB

REACTIONS (8)
  - Hepatitis [Unknown]
  - Rash [Unknown]
  - Pruritus [Unknown]
  - Hypothyroidism [Unknown]
  - Hyperthyroidism [Unknown]
  - Pneumonia [Unknown]
  - Infusion related reaction [Unknown]
  - Nephritis [Unknown]
